FAERS Safety Report 8192503-1 (Version None)
Quarter: 2012Q1

REPORT INFORMATION
  Report Type: 
  Country: None (occurrence: None)
  Receive Date: 20120308
  Receipt Date: 20120302
  Transmission Date: 20120608
  Serious: No
  Sender: FDA-Public Use
  Company Number: US-BIOGENIDEC-2012BI007906

PATIENT
  Sex: Female

DRUGS (1)
  1. TYSABRI [Suspect]
     Indication: MULTIPLE SCLEROSIS
     Route: 042
     Dates: start: 20090124

REACTIONS (7)
  - MEMORY IMPAIRMENT [None]
  - STRESS [None]
  - NECK PAIN [None]
  - FRUSTRATION [None]
  - SINUSITIS [None]
  - HEADACHE [None]
  - MUSCULOSKELETAL PAIN [None]
